APPROVED DRUG PRODUCT: AUSTEDO
Active Ingredient: DEUTETRABENAZINE
Strength: 9MG
Dosage Form/Route: TABLET;ORAL
Application: N208082 | Product #002
Applicant: TEVA BRANDED PHARMACEUTICAL PRODUCTS R AND D LLC
Approved: Apr 3, 2017 | RLD: Yes | RS: No | Type: RX

PATENTS:
Patent 9550780 | Expires: Sep 18, 2033
Patent 10959996 | Expires: Mar 7, 2036
Patent 11564917 | Expires: Mar 7, 2036
Patent 11357772 | Expires: Mar 7, 2036
Patent 11357772 | Expires: Mar 7, 2036
Patent 12016858 | Expires: Mar 7, 2036
Patent 12016858 | Expires: Mar 7, 2036
Patent 11648244 | Expires: Mar 7, 2036
Patent 9550780 | Expires: Sep 18, 2033
Patent 11179386 | Expires: Mar 15, 2038
Patent 11179386 | Expires: Mar 15, 2038
Patent 11446291 | Expires: Mar 7, 2036
Patent 9814708 | Expires: Sep 18, 2033
Patent 9296739 | Expires: Sep 18, 2033
Patent 11666566 | Expires: Sep 18, 2033
Patent 11813232 | Expires: Mar 15, 2038
Patent 9233959 | Expires: Sep 18, 2033
Patent 8524733 | Expires: Apr 3, 2031
Patent 9233959*PED | Expires: Mar 18, 2034
Patent 8524733*PED | Expires: Oct 3, 2031
Patent 9550780*PED | Expires: Mar 18, 2034
Patent 9296739*PED | Expires: Mar 18, 2034
Patent 9814708*PED | Expires: Mar 18, 2034
Patent 11813232*PED | Expires: Sep 15, 2038
Patent 10959996*PED | Expires: Sep 7, 2036
Patent 11564917*PED | Expires: Sep 7, 2036
Patent 11179386*PED | Expires: Sep 15, 2038
Patent 11666566*PED | Expires: Mar 18, 2034
Patent 11648244*PED | Expires: Sep 7, 2036
Patent 11446291*PED | Expires: Sep 7, 2036
Patent 11357772*PED | Expires: Sep 7, 2036
Patent 12016858*PED | Expires: Sep 7, 2036